FAERS Safety Report 10540801 (Version 1)
Quarter: 2014Q4

REPORT INFORMATION
  Report Type: Spontaneous
  Country: US (occurrence: None)
  Receive Date: 20141022
  Receipt Date: 20141022
  Transmission Date: 20150529
  Serious: Yes (Hospitalization)
  Sender: FDA-Public Use
  Company Number: 2014HINLIT0931

PATIENT
  Age: 2 Year
  Sex: Male
  Weight: 13 kg

DRUGS (12)
  1. BENZODIAZEPINE (BENZODIAZEPINE) [Concomitant]
     Active Substance: UNSPECIFIED INGREDIENT
  2. DIPHENYLHYDANTOIN (DIPHENYLHYDANTOIN) [Concomitant]
  3. PROPRANOLOL [Concomitant]
     Active Substance: PROPRANOLOL\PROPRANOLOL HYDROCHLORIDE
  4. MIDAZOLAM [Concomitant]
     Active Substance: MIDAZOLAM\MIDAZOLAM HYDROCHLORIDE
  5. ACYCLOVIR. [Suspect]
     Active Substance: ACYCLOVIR
     Indication: PRODUCT USED FOR UNKNOWN INDICATION
     Dosage: 30 MG/KG/DAY
     Route: 042
  6. PHENYTOIN (PHENYTOIN) [Concomitant]
     Active Substance: PHENYTOIN
  7. HALOPERIDOL (HALOPERIDOL) [Concomitant]
  8. FLUMAZENIL (FLUMAZENIL) [Concomitant]
  9. METHYLPREDNISOLON (METHYLPREDNISOLON) [Concomitant]
  10. IMMUNOGLOBLIN (IMMUNOGLOBLIN) [Concomitant]
  11. LEVETIRACETAM (LEVETIRACETAM) [Concomitant]
     Active Substance: LEVETIRACETAM
  12. CLOBAZAM (CLOBAZAM) [Concomitant]
     Active Substance: CLOBAZAM

REACTIONS (17)
  - Speech disorder [None]
  - Psychomotor hyperactivity [None]
  - Tonic clonic movements [None]
  - Chorea [None]
  - Hypotonia [None]
  - Hyperreflexia [None]
  - Hyperkinesia [None]
  - Blood immunoglobulin G abnormal [None]
  - Dyskinesia [None]
  - Insomnia [None]
  - Hypertension [None]
  - Encephalomalacia [None]
  - Dysphagia [None]
  - Salivary hypersecretion [None]
  - Extensor plantar response [None]
  - Restlessness [None]
  - Dyspnoea [None]
